FAERS Safety Report 21915721 (Version 2)
Quarter: 2023Q1

REPORT INFORMATION
  Report Type: Spontaneous
  Country: JP (occurrence: JP)
  Receive Date: 20230126
  Receipt Date: 20230206
  Transmission Date: 20230417
  Serious: Yes (Death, Other)
  Sender: FDA-Public Use
  Company Number: JP-MSD-M2023-02185

PATIENT
  Age: 10 Decade
  Sex: Female

DRUGS (1)
  1. ZERBAXA [Suspect]
     Active Substance: CEFTOLOZANE SULFATE\TAZOBACTAM SODIUM
     Indication: Pneumonia bacterial
     Dosage: 3 GRAM, TID
     Route: 041
     Dates: start: 20230110, end: 20230115

REACTIONS (1)
  - Death [Fatal]

NARRATIVE: CASE EVENT DATE: 20230116
